FAERS Safety Report 10049724 (Version 1)
Quarter: 2014Q2

REPORT INFORMATION
  Report Type: Spontaneous
  Country: US (occurrence: US)
  Receive Date: 20140401
  Receipt Date: 20140401
  Transmission Date: 20141212
  Serious: Yes (Other)
  Sender: FDA-Public Use
  Company Number: US-ASTELLAS-2014US003095

PATIENT
  Sex: Female

DRUGS (2)
  1. MYRBETRIQ [Suspect]
     Indication: PRODUCT USED FOR UNKNOWN INDICATION
     Dosage: 25 MG, UID/QD
     Route: 048
  2. MYRBETRIQ [Suspect]
     Dosage: 50 MG, UID/QD
     Route: 065
     Dates: start: 20140311

REACTIONS (5)
  - Drug ineffective [Unknown]
  - Syncope [Unknown]
  - Malaise [Unknown]
  - Nausea [Unknown]
  - Dizziness [Unknown]
